FAERS Safety Report 10537674 (Version 1)
Quarter: 2014Q4

REPORT INFORMATION
  Report Type: Report from Study
  Country: BR (occurrence: BR)
  Receive Date: 20141023
  Receipt Date: 20141023
  Transmission Date: 20150529
  Serious: Yes (Other)
  Sender: FDA-Public Use
  Company Number: PHHY2014BR136829

PATIENT
  Sex: Female
  Weight: 52 kg

DRUGS (10)
  1. DIOVAN HCT [Suspect]
     Active Substance: HYDROCHLOROTHIAZIDE\VALSARTAN
     Indication: BLOOD PRESSURE ABNORMAL
     Dosage: 1 DF (VALSARTAN 160MG, HYDROCHLOROTHIAZIDE12.5MG) QD (IN THE MORNING)
     Route: 048
     Dates: start: 2006, end: 201407
  2. EXFORGE HCT [Suspect]
     Active Substance: AMLODIPINE BESYLATE\HYDROCHLOROTHIAZIDE\VALSARTAN
     Indication: BLOOD PRESSURE ABNORMAL
     Dosage: 1 DF (VALSARTAN 160MG, AMLODIPINE 5MG, HYDROCHLOROTHIAZIDE 25MG) QD
     Route: 048
     Dates: start: 201407, end: 201407
  3. ATENOLOL. [Concomitant]
     Active Substance: ATENOLOL
     Dosage: 50 MG, UNK
  4. SIMVASTATIN. [Concomitant]
     Active Substance: SIMVASTATIN
     Indication: CARDIAC DISORDER
     Dosage: 20 MG, UNK
     Route: 065
  5. SUSTRATE [Concomitant]
     Active Substance: PROPATYL NITRATE
     Indication: CHEST PAIN
     Dosage: 20 MG, UNK
     Route: 065
     Dates: start: 199406
  6. SUSTRATE [Concomitant]
     Active Substance: PROPATYL NITRATE
     Indication: COAGULOPATHY
  7. SIMVASTATIN. [Concomitant]
     Active Substance: SIMVASTATIN
     Indication: CARDIOVASCULAR DISORDER
  8. SOMALGIN [Concomitant]
     Active Substance: ASPIRIN\DIHYDROXYALUMINUM AMINOACETATE ANHYDROUS\MAGNESIUM CARBONATE
     Indication: BLOOD CHOLESTEROL ABNORMAL
     Dosage: 100 MG, UNK
     Route: 065
     Dates: start: 199406
  9. PROCIMAX [Concomitant]
     Active Substance: CITALOPRAM HYDROBROMIDE
     Indication: DEPRESSION
     Dosage: 20 MG, UNK
     Route: 065
     Dates: start: 201401
  10. ATENOLOL. [Concomitant]
     Active Substance: ATENOLOL
     Indication: BLOOD PRESSURE ABNORMAL
     Dosage: 25 MG, UNK
     Route: 065
     Dates: end: 201301

REACTIONS (7)
  - Dyspnoea [Unknown]
  - Chest pain [Unknown]
  - Thyroid cyst [Unknown]
  - Nasopharyngitis [Unknown]
  - Malaise [Unknown]
  - Thyroid neoplasm [Unknown]
  - Hypoaesthesia oral [Unknown]
